FAERS Safety Report 6335903-4 (Version None)
Quarter: 2009Q3

REPORT INFORMATION
  Report Type: 
  Country: None (occurrence: None)
  Receive Date: 20090901
  Receipt Date: 20070601
  Transmission Date: 20100115
  Serious: Yes (Hospitalization)
  Sender: FDA-Public Use
  Company Number: US-ASTRAZENECA-2006UW24971

PATIENT
  Age: 27207 Day
  Sex: Female
  Weight: 77.1 kg

DRUGS (32)
  1. SEROQUEL [Suspect]
     Indication: BIPOLAR I DISORDER
     Route: 048
     Dates: start: 20040202
  2. SEROQUEL [Suspect]
     Route: 048
     Dates: start: 20040217, end: 20040601
  3. AMITRIPTYLINE HCL [Concomitant]
     Dates: start: 20020101
  4. ATENOLOL [Concomitant]
     Dates: start: 20020101, end: 20030101
  5. MOBIC [Concomitant]
     Dates: start: 20020101
  6. MOBIC [Concomitant]
     Route: 048
     Dates: start: 20030401
  7. ZANAFLEX [Concomitant]
     Dates: start: 20020101
  8. NEXIUM [Concomitant]
     Dates: start: 20020101
  9. ZOCOR [Concomitant]
     Dates: start: 20030101
  10. PROTONIX [Concomitant]
     Dates: start: 20030101
  11. MSM [Concomitant]
     Route: 048
     Dates: start: 20030101
  12. MORPHINE SULFATE [Concomitant]
  13. LEVOXYL [Concomitant]
     Dates: start: 20030101
  14. LEXAPRO [Concomitant]
     Route: 048
     Dates: start: 20030528
  15. NEURONTIN [Concomitant]
     Dates: start: 20030616, end: 20070820
  16. NEURONTIN [Concomitant]
     Route: 048
     Dates: start: 20060429
  17. CRESTOR [Concomitant]
     Dates: start: 20040101
  18. REGLAN [Concomitant]
     Dates: start: 20040201
  19. LITHIUM CARBONATE [Concomitant]
     Dates: start: 20040204, end: 20060224
  20. DEPAKOTE [Concomitant]
  21. TRAMADOL HCL [Concomitant]
     Dates: start: 20040101
  22. ROXICET [Concomitant]
  23. TYLENOL W/ CODEINE NO. 3 [Concomitant]
  24. XANAX [Concomitant]
     Route: 048
  25. AMBIEN [Concomitant]
     Dates: start: 20060101
  26. VICODIN [Concomitant]
  27. LORATADINE [Concomitant]
  28. DARVOCET [Concomitant]
     Dosage: 1 TO 2 TABLETS EVERY 4-6 HOURS
     Route: 048
  29. CARBAMAZEPINE [Concomitant]
     Route: 048
     Dates: start: 20040202
  30. LISINOPRIL [Concomitant]
     Route: 048
     Dates: start: 20040202
  31. ULTRAM [Concomitant]
     Route: 048
     Dates: start: 20060429
  32. AVANDIA [Concomitant]
     Route: 048
     Dates: start: 20030401

REACTIONS (14)
  - ANAEMIA [None]
  - DIARRHOEA [None]
  - DIVERTICULUM [None]
  - FALL [None]
  - HAEMORRHOIDS [None]
  - JOINT DISLOCATION [None]
  - LEG AMPUTATION [None]
  - MALNUTRITION [None]
  - MONONEURITIS [None]
  - MULTIPLE INJURIES [None]
  - PLATELET COUNT DECREASED [None]
  - RHABDOMYOLYSIS [None]
  - SYNOVIAL CYST [None]
  - URINARY TRACT INFECTION [None]
